FAERS Safety Report 9447352 (Version 1)
Quarter: 2013Q3

REPORT INFORMATION
  Report Type: Spontaneous
  Country: GB (occurrence: GB)
  Receive Date: 20130808
  Receipt Date: 20130808
  Transmission Date: 20140515
  Serious: Yes (Other)
  Sender: FDA-Public Use
  Company Number: GB-ROCHE-1258242

PATIENT
  Sex: Female

DRUGS (1)
  1. BONVIVA [Suspect]
     Indication: PRODUCT USED FOR UNKNOWN INDICATION
     Dosage: 3MG/3ML
     Route: 065

REACTIONS (5)
  - Fibromyalgia [Unknown]
  - Malaise [Unknown]
  - Gait disturbance [Unknown]
  - Hypokinesia [Unknown]
  - Influenza like illness [Unknown]
